FAERS Safety Report 7779166-1 (Version None)
Quarter: 2011Q3

REPORT INFORMATION
  Report Type: 
  Country: None (occurrence: None)
  Receive Date: 20110926
  Receipt Date: 20110913
  Transmission Date: 20111222
  Serious: Yes (Death, Hospitalization, Other)
  Sender: FDA-Public Use
  Company Number: SK-ELI_LILLY_AND_COMPANY-SK201106008649

PATIENT
  Age: 27 Year
  Sex: Male
  Weight: 79 kg

DRUGS (7)
  1. OLANZAPINE [Suspect]
     Dosage: 300 MG Q 2 WEEKS
     Route: 030
     Dates: start: 20101222, end: 20110509
  2. ZYPREXA [Suspect]
     Dosage: UNK
     Dates: start: 20101209
  3. ALPRAZOLAM [Concomitant]
     Dosage: 1 MG, UNK
  4. LEVOPROMAZIN [Concomitant]
     Dosage: UNK, UNKNOWN
     Route: 065
  5. TRAZODONE HYDROCHLORIDE [Concomitant]
     Dosage: UNK, UNKNOWN
     Route: 065
  6. OLANZAPINE [Suspect]
     Indication: SCHIZOPHRENIA, PARANOID TYPE
     Dosage: 405MG Q 4 WEEKS
     Route: 030
     Dates: start: 20101201
  7. ZOLPIDEM [Concomitant]
     Indication: INSOMNIA
     Dosage: UNK, UNKNOWN
     Route: 065

REACTIONS (4)
  - HOSPITALISATION [None]
  - SUICIDAL IDEATION [None]
  - COMPLETED SUICIDE [None]
  - SUICIDE ATTEMPT [None]
